FAERS Safety Report 12081402 (Version 1)
Quarter: 2016Q1

REPORT INFORMATION
  Report Type: Spontaneous
  Country: IT (occurrence: IT)
  Receive Date: 20160216
  Receipt Date: 20160216
  Transmission Date: 20160526
  Serious: Yes (Hospitalization)
  Sender: FDA-Public Use
  Company Number: IT-PFIZER INC-2016084152

PATIENT
  Age: 92 Year
  Sex: Female

DRUGS (8)
  1. TRIAZOLAM. [Concomitant]
     Active Substance: TRIAZOLAM
     Dosage: 125 UG, UNK
  2. ROCEFIN [Concomitant]
     Active Substance: CEFTRIAXONE SODIUM
  3. MEDROL [Suspect]
     Active Substance: METHYLPREDNISOLONE
     Indication: PNEUMONIA
     Dosage: 8 MG, 1X/DAY
     Route: 048
     Dates: start: 20150704, end: 20150707
  4. METFORMIN [Concomitant]
     Active Substance: METFORMIN HYDROCHLORIDE
     Dosage: 1000 MG, UNK
  5. CYMBALTA [Concomitant]
     Active Substance: DULOXETINE HYDROCHLORIDE
     Dosage: 30 MG, UNK
  6. ISOSORBIDE MONONITRATE. [Concomitant]
     Active Substance: ISOSORBIDE MONONITRATE
     Dosage: 40 MG, UNK
  7. EBIXA [Concomitant]
     Active Substance: MEMANTINE HYDROCHLORIDE
  8. COUMADIN [Suspect]
     Active Substance: WARFARIN SODIUM
     Indication: THROMBOSIS PROPHYLAXIS
     Dosage: UNK
     Route: 048
     Dates: start: 20150101, end: 20150707

REACTIONS (4)
  - Hyperglycaemia [Unknown]
  - Atrial fibrillation [Unknown]
  - Sopor [Unknown]
  - Hyperglycaemic seizure [Unknown]

NARRATIVE: CASE EVENT DATE: 20150707
